FAERS Safety Report 6536510-0 (Version None)
Quarter: 2010Q1

REPORT INFORMATION
  Report Type: 
  Country: None (occurrence: None)
  Receive Date: 20100105
  Receipt Date: 20091223
  Transmission Date: 20100710
  Serious: Yes (Hospitalization, Other)
  Sender: FDA-Public Use
  Company Number: JHP200900470

PATIENT
  Age: 75 Year
  Sex: Female

DRUGS (7)
  1. KETALAR [Suspect]
     Indication: ARTHRALGIA
     Dosage: 170 MG, QID, ORAL; 200 MG, 5X PER DAY, ORAL
     Route: 048
  2. KETALAR [Suspect]
     Indication: METASTATIC PAIN
     Dosage: 170 MG, QID, ORAL; 200 MG, 5X PER DAY, ORAL
     Route: 048
  3. NABUMETONE [Concomitant]
  4. CLONAZEPAM [Concomitant]
  5. DEXAMETHASONE SODIUM PHOSPHATE [Concomitant]
  6. ACETAMINOPHEN [Concomitant]
  7. FENTANYL CITRATE [Concomitant]

REACTIONS (10)
  - BLADDER CANCER STAGE 0, WITH CANCER IN SITU [None]
  - BLADDER PAIN [None]
  - CYSTITIS [None]
  - FATIGUE [None]
  - HAEMATURIA [None]
  - NOCTURIA [None]
  - POLLAKIURIA [None]
  - PYURIA [None]
  - REFUSAL OF TREATMENT BY PATIENT [None]
  - TELANGIECTASIA [None]
